FAERS Safety Report 6715744-6 (Version None)
Quarter: 2010Q2

REPORT INFORMATION
  Report Type: 
  Country: None (occurrence: None)
  Receive Date: 20100507
  Receipt Date: 20100503
  Transmission Date: 20101027
  Serious: Yes (Hospitalization)
  Sender: FDA-Public Use
  Company Number: US-RB-006396-10

PATIENT
  Age: 59 Year
  Sex: Female

DRUGS (3)
  1. SUBOXONE [Suspect]
     Route: 060
     Dates: start: 20090901, end: 20100301
  2. SUBOXONE [Suspect]
     Route: 060
     Dates: start: 20100301, end: 20100402
  3. ANIT-REJECTION MEDICATIONS [Concomitant]
     Dosage: DOSING DETAILS UNKNOWN
     Route: 065
     Dates: start: 20080101

REACTIONS (2)
  - INCISIONAL HERNIA [None]
  - PROCEDURAL PAIN [None]
